FAERS Safety Report 26107841 (Version 1)
Quarter: 2025Q4

REPORT INFORMATION
  Report Type: Spontaneous
  Country: EU (occurrence: EU)
  Receive Date: 20251201
  Receipt Date: 20251201
  Transmission Date: 20260119
  Serious: Yes (Other)
  Sender: MYLAN
  Company Number: EU-MYLANLABS-2025M1099587

PATIENT
  Age: 72 Year
  Sex: Female

DRUGS (44)
  1. PACLITAXEL [Suspect]
     Active Substance: PACLITAXEL
     Indication: Endometrial cancer metastatic
     Dosage: UNK
  2. PACLITAXEL [Suspect]
     Active Substance: PACLITAXEL
     Dosage: UNK
  3. PACLITAXEL [Suspect]
     Active Substance: PACLITAXEL
     Dosage: UNK
     Route: 065
  4. PACLITAXEL [Suspect]
     Active Substance: PACLITAXEL
     Dosage: UNK
     Route: 065
  5. PACLITAXEL [Suspect]
     Active Substance: PACLITAXEL
     Dosage: UNK, RESTARTED
  6. PACLITAXEL [Suspect]
     Active Substance: PACLITAXEL
     Dosage: UNK, RESTARTED
  7. PACLITAXEL [Suspect]
     Active Substance: PACLITAXEL
     Dosage: UNK, RESTARTED
     Route: 065
  8. PACLITAXEL [Suspect]
     Active Substance: PACLITAXEL
     Dosage: UNK, RESTARTED
     Route: 065
  9. CARBOPLATIN [Suspect]
     Active Substance: CARBOPLATIN
     Indication: Endometrial cancer metastatic
     Dosage: UNK
  10. CARBOPLATIN [Suspect]
     Active Substance: CARBOPLATIN
     Dosage: UNK
  11. CARBOPLATIN [Suspect]
     Active Substance: CARBOPLATIN
     Dosage: UNK
     Route: 065
  12. CARBOPLATIN [Suspect]
     Active Substance: CARBOPLATIN
     Dosage: UNK
     Route: 065
  13. CARBOPLATIN [Suspect]
     Active Substance: CARBOPLATIN
     Dosage: UNK, RESTARTED
  14. CARBOPLATIN [Suspect]
     Active Substance: CARBOPLATIN
     Dosage: UNK, RESTARTED
  15. CARBOPLATIN [Suspect]
     Active Substance: CARBOPLATIN
     Dosage: UNK, RESTARTED
     Route: 065
  16. CARBOPLATIN [Suspect]
     Active Substance: CARBOPLATIN
     Dosage: UNK, RESTARTED
     Route: 065
  17. DOXORUBICIN [Suspect]
     Active Substance: DOXORUBICIN
     Indication: Endometrial cancer metastatic
     Dosage: UNK, LIPOSOMAL
  18. DOXORUBICIN [Suspect]
     Active Substance: DOXORUBICIN
     Dosage: UNK, LIPOSOMAL
     Route: 065
  19. DOXORUBICIN [Suspect]
     Active Substance: DOXORUBICIN
     Dosage: UNK, LIPOSOMAL
     Route: 065
  20. DOXORUBICIN [Suspect]
     Active Substance: DOXORUBICIN
     Dosage: UNK, LIPOSOMAL
  21. PEMBROLIZUMAB [Suspect]
     Active Substance: PEMBROLIZUMAB
     Indication: Endometrial cancer metastatic
     Dosage: 200 MILLIGRAM, Q3W
     Dates: start: 202408
  22. PEMBROLIZUMAB [Suspect]
     Active Substance: PEMBROLIZUMAB
     Dosage: 200 MILLIGRAM, Q3W
     Route: 065
     Dates: start: 202408
  23. PEMBROLIZUMAB [Suspect]
     Active Substance: PEMBROLIZUMAB
     Dosage: 200 MILLIGRAM, Q3W
     Route: 065
     Dates: start: 202408
  24. PEMBROLIZUMAB [Suspect]
     Active Substance: PEMBROLIZUMAB
     Dosage: 200 MILLIGRAM, Q3W
     Dates: start: 202408
  25. LENVATINIB [Suspect]
     Active Substance: LENVATINIB
     Indication: Endometrial cancer metastatic
     Dosage: 20 MILLIGRAM, QD
     Dates: start: 202408
  26. LENVATINIB [Suspect]
     Active Substance: LENVATINIB
     Dosage: 20 MILLIGRAM, QD
     Route: 065
     Dates: start: 202408
  27. LENVATINIB [Suspect]
     Active Substance: LENVATINIB
     Dosage: 20 MILLIGRAM, QD
     Route: 065
     Dates: start: 202408
  28. LENVATINIB [Suspect]
     Active Substance: LENVATINIB
     Dosage: 20 MILLIGRAM, QD
     Dates: start: 202408
  29. PREDNISOLONE [Concomitant]
     Active Substance: PREDNISOLONE
     Indication: Prophylaxis
     Dosage: 5 MILLIGRAM, QD
     Dates: start: 202408
  30. PREDNISOLONE [Concomitant]
     Active Substance: PREDNISOLONE
     Dosage: 5 MILLIGRAM, QD
     Route: 065
     Dates: start: 202408
  31. PREDNISOLONE [Concomitant]
     Active Substance: PREDNISOLONE
     Dosage: 5 MILLIGRAM, QD
     Route: 065
     Dates: start: 202408
  32. PREDNISOLONE [Concomitant]
     Active Substance: PREDNISOLONE
     Dosage: 5 MILLIGRAM, QD
     Dates: start: 202408
  33. RUXOLITINIB [Concomitant]
     Active Substance: RUXOLITINIB
     Indication: Haemophagocytic lymphohistiocytosis
     Dosage: UNK, GRADUALLY TAPERING AND THEN DISCONTINUED
  34. RUXOLITINIB [Concomitant]
     Active Substance: RUXOLITINIB
     Dosage: UNK, GRADUALLY TAPERING AND THEN DISCONTINUED
     Route: 065
  35. RUXOLITINIB [Concomitant]
     Active Substance: RUXOLITINIB
     Dosage: UNK, GRADUALLY TAPERING AND THEN DISCONTINUED
     Route: 065
  36. RUXOLITINIB [Concomitant]
     Active Substance: RUXOLITINIB
     Dosage: UNK, GRADUALLY TAPERING AND THEN DISCONTINUED
  37. DOSTARLIMAB [Concomitant]
     Active Substance: DOSTARLIMAB
     Indication: Endometrial cancer metastatic
  38. DOSTARLIMAB [Concomitant]
     Active Substance: DOSTARLIMAB
     Route: 065
  39. DOSTARLIMAB [Concomitant]
     Active Substance: DOSTARLIMAB
     Route: 065
  40. DOSTARLIMAB [Concomitant]
     Active Substance: DOSTARLIMAB
  41. METHYLPREDNISOLONE [Concomitant]
     Active Substance: METHYLPREDNISOLONE
     Indication: Haemophagocytic lymphohistiocytosis
     Dosage: UNK, GRADUALLY TAPERING AND THEN DISCONTINUED
  42. METHYLPREDNISOLONE [Concomitant]
     Active Substance: METHYLPREDNISOLONE
     Dosage: UNK, GRADUALLY TAPERING AND THEN DISCONTINUED
     Route: 065
  43. METHYLPREDNISOLONE [Concomitant]
     Active Substance: METHYLPREDNISOLONE
     Dosage: UNK, GRADUALLY TAPERING AND THEN DISCONTINUED
     Route: 065
  44. METHYLPREDNISOLONE [Concomitant]
     Active Substance: METHYLPREDNISOLONE
     Dosage: UNK, GRADUALLY TAPERING AND THEN DISCONTINUED

REACTIONS (3)
  - Drug ineffective [Unknown]
  - Disease progression [Unknown]
  - Product use in unapproved indication [Unknown]

NARRATIVE: CASE EVENT DATE: 20240801
